FAERS Safety Report 24092455 (Version 1)
Quarter: 2024Q3

REPORT INFORMATION
  Report Type: Spontaneous
  Country: US (occurrence: US)
  Receive Date: 20240715
  Receipt Date: 20240715
  Transmission Date: 20241016
  Serious: No
  Sender: PERRIGO
  Company Number: US-PERRIGO-24US003763

PATIENT

DRUGS (1)
  1. MINOXIDIL [Suspect]
     Active Substance: MINOXIDIL
     Indication: Prophylaxis
     Dosage: UNKNOWN, UNKNOWN
     Route: 061

REACTIONS (4)
  - Application site discolouration [Unknown]
  - Application site exfoliation [Unknown]
  - Application site pruritus [Unknown]
  - Off label use [Unknown]
